FAERS Safety Report 5215555-7 (Version None)
Quarter: 2007Q1

REPORT INFORMATION
  Report Type: 
  Country: None (occurrence: None)
  Receive Date: 20070123
  Receipt Date: 20070115
  Transmission Date: 20070707
  Serious: Yes (Other)
  Sender: FDA-Public Use
  Company Number: US-BAYER-200710152BCC

PATIENT
  Age: 24 Year
  Sex: Female
  Weight: 52 kg

DRUGS (1)
  1. ALEVE [Suspect]
     Indication: MIGRAINE
     Dosage: TOTAL DAILY DOSE: 660 MG  UNIT DOSE: 220 MG
     Route: 048
     Dates: start: 20070115

REACTIONS (1)
  - LOSS OF CONSCIOUSNESS [None]
